FAERS Safety Report 14833929 (Version 1)
Quarter: 2018Q2

REPORT INFORMATION
  Report Type: Spontaneous
  Country: US (occurrence: US)
  Receive Date: 20180501
  Receipt Date: 20180501
  Transmission Date: 20180711
  Serious: No
  Sender: FDA-Public Use
  Company Number: US-ROCHE-2058228

PATIENT
  Sex: Male

DRUGS (2)
  1. CBD OIL [Concomitant]
     Active Substance: CANNABIDIOL
     Dosage: BOSMERIC SR
     Route: 065
  2. AVASTIN [Suspect]
     Active Substance: BEVACIZUMAB
     Indication: PRODUCT USED FOR UNKNOWN INDICATION
     Dosage: ONGOING: UNKNOWN
     Route: 065

REACTIONS (1)
  - Decreased appetite [Unknown]
